FAERS Safety Report 6820969-5 (Version None)
Quarter: 2010Q3

REPORT INFORMATION
  Report Type: 
  Country: None (occurrence: None)
  Receive Date: 20100707
  Receipt Date: 20070814
  Transmission Date: 20110219
  Serious: No
  Sender: FDA-Public Use
  Company Number: US-PFIZER INC-2007067368

PATIENT
  Sex: Female
  Weight: 60 kg

DRUGS (5)
  1. ZOLOFT [Suspect]
     Indication: THINKING ABNORMAL
     Dates: start: 19970101, end: 20070701
  2. SERTRALINE HCL [Suspect]
     Indication: THINKING ABNORMAL
     Dates: start: 20070701
  3. ANASTROZOLE [Concomitant]
     Indication: BREAST CANCER
  4. MEVACOR [Concomitant]
  5. XANAX [Concomitant]

REACTIONS (1)
  - DRUG INEFFECTIVE [None]
